FAERS Safety Report 5319392-4 (Version None)
Quarter: 2007Q2

REPORT INFORMATION
  Report Type: 
  Country: None (occurrence: None)
  Receive Date: 20070508
  Receipt Date: 20070430
  Transmission Date: 20071010
  Serious: Yes (Other)
  Sender: FDA-Public Use
  Company Number: US-PFIZER INC-2007018934

PATIENT
  Sex: Female
  Weight: 95.3 kg

DRUGS (7)
  1. LYRICA [Suspect]
     Indication: NEUROPATHY PERIPHERAL
     Dates: start: 20070307, end: 20070307
  2. LYRICA [Suspect]
     Indication: POLYARTERITIS NODOSA
  3. PLAQUENIL [Concomitant]
  4. PREDNISONE TAB [Concomitant]
  5. METHOTREXATE [Concomitant]
  6. IBUPROFEN [Concomitant]
  7. PREMARIN [Concomitant]

REACTIONS (3)
  - DYSSTASIA [None]
  - INTENTIONAL DRUG MISUSE [None]
  - WEIGHT INCREASED [None]
